FAERS Safety Report 18058460 (Version 1)
Quarter: 2020Q3

REPORT INFORMATION
  Report Type: Spontaneous
  Country: TR (occurrence: TR)
  Receive Date: 20200723
  Receipt Date: 20200723
  Transmission Date: 20201103
  Serious: Yes (Hospitalization)
  Sender: FDA-Public Use
  Company Number: TR-LUPIN PHARMACEUTICALS INC.-2020-03483

PATIENT
  Age: 61 Year
  Sex: Female

DRUGS (10)
  1. HYDROXYCHLOROQUINE [Suspect]
     Active Substance: HYDROXYCHLOROQUINE
     Dosage: 200 MILLIGRAM, BID (MAINTENANCE DOSE)
     Route: 065
  2. FAVIPIRAVIR [Suspect]
     Active Substance: FAVIPIRAVIR
     Dosage: 600 MILLIGRAM, BID (MAINTENANCE DOSE)
     Route: 065
  3. OSELTAMIVIR PHOSPHATE. [Suspect]
     Active Substance: OSELTAMIVIR PHOSPHATE
     Indication: COVID-19
     Dosage: 75 MILLIGRAM, BID
     Route: 065
  4. SECUKINUMAB. [Concomitant]
     Active Substance: SECUKINUMAB
     Indication: ANKYLOSING SPONDYLITIS
     Dosage: UNK
     Route: 065
  5. ENOXAPARIN SODIUM. [Concomitant]
     Active Substance: ENOXAPARIN SODIUM
     Indication: PRODUCT USED FOR UNKNOWN INDICATION
     Dosage: 60 MICROGRAM
     Route: 065
  6. TOCILIZUMAB. [Suspect]
     Active Substance: TOCILIZUMAB
     Indication: COVID-19
     Dosage: 400 MILLIGRAM
     Route: 042
  7. HYDROXYCHLOROQUINE [Suspect]
     Active Substance: HYDROXYCHLOROQUINE
     Indication: COVID-19
     Dosage: 400 MILLIGRAM, BID (TWICE ON THE FIRST DAY)
     Route: 065
  8. RANITIDINE. [Suspect]
     Active Substance: RANITIDINE
     Indication: COVID-19
     Dosage: 50 MILLIGRAM
     Route: 065
  9. FAVIPIRAVIR [Suspect]
     Active Substance: FAVIPIRAVIR
     Indication: COVID-19
     Dosage: 1600 MILLIGRAM, BID (TWICE ON THE FIRST DAY)
     Route: 065
  10. PREDNISOLONE. [Suspect]
     Active Substance: PREDNISOLONE
     Indication: COVID-19
     Dosage: 40 MILLIGRAM
     Route: 042

REACTIONS (1)
  - Off label use [Unknown]
